FAERS Safety Report 7285290-2 (Version None)
Quarter: 2011Q1

REPORT INFORMATION
  Report Type: 
  Country: None (occurrence: None)
  Receive Date: 20110210
  Receipt Date: 20110203
  Transmission Date: 20110831
  Serious: Yes (Other)
  Sender: FDA-Public Use
  Company Number: DE-SANOFI-AVENTIS-2011SA007129

PATIENT
  Age: 76 Year
  Sex: Female

DRUGS (8)
  1. MOLSIDOMINE [Concomitant]
     Dosage: DOSAGE: 1-0-1/2
     Route: 065
  2. LEVOTHYROXINE SODIUM [Concomitant]
     Route: 065
  3. NOVALGIN [Concomitant]
     Route: 065
  4. OMEPRAZOLE [Concomitant]
     Route: 065
  5. MULTAQ [Suspect]
     Indication: ATRIAL FIBRILLATION
     Route: 048
     Dates: start: 20101103, end: 20110202
  6. HYDROCHLOROTHIAZIDE/OLMESARTAN MEDOXOMIL [Concomitant]
     Dosage: DOSAGE: 20/12.5 MG
     Route: 065
     Dates: end: 20110202
  7. FLUVASTATIN [Concomitant]
     Route: 065
  8. MARCUMAR [Concomitant]
     Dosage: DOSAGE: ACCORDING TO INR
     Route: 065

REACTIONS (3)
  - BLOOD CREATININE INCREASED [None]
  - RENAL FAILURE [None]
  - GLOMERULAR FILTRATION RATE DECREASED [None]
